FAERS Safety Report 10353911 (Version 1)
Quarter: 2014Q3

REPORT INFORMATION
  Report Type: Report from Study
  Country: US (occurrence: US)
  Receive Date: 20140731
  Receipt Date: 20140731
  Transmission Date: 20150326
  Serious: Yes (Other)
  Sender: FDA-Public Use
  Company Number: US-ROCHE-1441167

PATIENT
  Age: 16 Year
  Sex: Male
  Weight: 55 kg

DRUGS (2)
  1. NUTROPIN [Suspect]
     Active Substance: SOMATROPIN
     Indication: GROWTH HORMONE DEFICIENCY
     Dosage: Q HS
     Route: 058
  2. THYROXINE [Concomitant]
     Active Substance: LEVOTHYROXINE
     Dosage: Q DAY
     Route: 048

REACTIONS (3)
  - Back pain [Unknown]
  - Fall [Unknown]
  - Spinal X-ray abnormal [Unknown]

NARRATIVE: CASE EVENT DATE: 201407
